FAERS Safety Report 8443066-4 (Version None)
Quarter: 2012Q2

REPORT INFORMATION
  Report Type: 
  Country: None (occurrence: None)
  Receive Date: 20120615
  Receipt Date: 20120612
  Transmission Date: 20120825
  Serious: Yes (Hospitalization)
  Sender: FDA-Public Use
  Company Number: US-BAXTER-2012BAX008360

PATIENT
  Sex: Female

DRUGS (1)
  1. GAMMAGARD LIQUID [Suspect]
     Route: 042
     Dates: start: 20120527, end: 20120530

REACTIONS (6)
  - CHEST PAIN [None]
  - BLOOD PRESSURE INCREASED [None]
  - PARAESTHESIA [None]
  - ASTHMA [None]
  - RASH [None]
  - OEDEMA PERIPHERAL [None]
